FAERS Safety Report 9352536 (Version 1)
Quarter: 2013Q2

REPORT INFORMATION
  Report Type: Spontaneous
  Country: US (occurrence: US)
  Receive Date: 20130618
  Receipt Date: 20130618
  Transmission Date: 20140414
  Serious: No
  Sender: FDA-Public Use
  Company Number: US-009507513-1306USA003740

PATIENT
  Sex: Male

DRUGS (3)
  1. VICTRELIS [Suspect]
     Indication: HEPATITIS C
     Dosage: 200 MG, Q8H
     Route: 048
     Dates: start: 20130401
  2. RIBASPHERE [Suspect]
     Dosage: 600 MG, BID
  3. PEGASYS [Suspect]
     Dosage: 135 MICROGRAM UNDER SK, QW

REACTIONS (3)
  - Dysgeusia [Unknown]
  - Rash [Unknown]
  - Product quality issue [Unknown]
